FAERS Safety Report 4512328-5 (Version None)
Quarter: 2004Q4

REPORT INFORMATION
  Report Type: 
  Country: None (occurrence: None)
  Receive Date: 20041129
  Receipt Date: 20041118
  Transmission Date: 20050328
  Serious: Yes (Other)
  Sender: FDA-Public Use
  Company Number: GB-GLAXOSMITHKLINE-B0357651A

PATIENT
  Age: 35 Year
  Sex: Male
  Weight: 46 kg

DRUGS (13)
  1. AVANDIA [Suspect]
     Indication: DIABETES MELLITUS INSULIN-DEPENDENT
     Dosage: 1UNIT PER DAY
     Route: 048
     Dates: start: 20040803, end: 20040920
  2. SNO TEARS [Concomitant]
     Route: 065
     Dates: start: 20040909
  3. CETIRIZINE HCL [Concomitant]
     Dosage: 1UNIT TWICE PER DAY
     Route: 065
     Dates: start: 19990827
  4. ATENOLOL [Concomitant]
     Dosage: 1UNIT PER DAY
     Route: 065
     Dates: start: 20000619
  5. TELMISARTAN [Concomitant]
     Dosage: 1UNIT PER DAY
     Route: 065
  6. IBUPROFEN [Concomitant]
     Dosage: 1UNIT THREE TIMES PER DAY
     Route: 065
  7. INSULIN GLARGINE [Concomitant]
     Route: 065
  8. BEZAFIBRATE [Concomitant]
     Dosage: 1UNIT PER DAY
     Route: 065
     Dates: start: 20040610
  9. SUPRA [Concomitant]
     Dosage: 1UNIT PER DAY
     Route: 065
  10. RHINOCORT [Concomitant]
     Dosage: 1PUFF TWICE PER DAY
     Route: 065
  11. NOVORAPID [Concomitant]
     Route: 065
     Dates: start: 20010522
  12. CO-CODAMOL [Concomitant]
     Dosage: 1UNIT FOUR TIMES PER DAY
     Route: 065
     Dates: start: 20030317
  13. ACTIVE [Concomitant]
     Dates: start: 20041105

REACTIONS (1)
  - HYPOGLYCAEMIA UNAWARENESS [None]
